FAERS Safety Report 22616301 (Version 1)
Quarter: 2023Q2

REPORT INFORMATION
  Report Type: Spontaneous
  Country: FR (occurrence: FR)
  Receive Date: 20230619
  Receipt Date: 20230619
  Transmission Date: 20230721
  Serious: Yes (Death, Other)
  Sender: FDA-Public Use
  Company Number: FR-DENTSPLY-2023SCDP000186

PATIENT
  Age: 78 Year
  Sex: Female

DRUGS (6)
  1. EPINEPHRINE BITARTRATE\LIDOCAINE HYDROCHLORIDE [Suspect]
     Active Substance: EPINEPHRINE BITARTRATE\LIDOCAINE HYDROCHLORIDE
     Indication: Spinal laminectomy
     Dosage: 60 MILLIGRAM
     Route: 042
     Dates: start: 20230405
  2. DROPERIDOL [Suspect]
     Active Substance: DROPERIDOL
     Indication: Spinal laminectomy
     Dosage: 1 DOSAGE FORM OF DROLEPTAN 1.25 MG/2.5 ML, SOLUTION FOR INJECTION
     Route: 042
     Dates: start: 20230405
  3. PROPOFOL [Suspect]
     Active Substance: PROPOFOL
     Indication: Spinal laminectomy
     Dosage: 150 MILLIGRAM
     Route: 042
     Dates: start: 20230405
  4. TRACRIUM [Suspect]
     Active Substance: ATRACURIUM BESYLATE
     Indication: Spinal laminectomy
     Dosage: TRACRIUM 25 MG/2.5 ML (1%), SOLUTION FOR INJECTION IN AMPOULE
     Route: 042
     Dates: start: 20230405
  5. DEXAMETHASONE [Suspect]
     Active Substance: DEXAMETHASONE
     Indication: Spinal laminectomy
     Dosage: 8 MILLIGRAM
     Route: 042
     Dates: start: 20230405
  6. SUFENTA [Suspect]
     Active Substance: SUFENTANIL CITRATE
     Indication: Spinal laminectomy
     Dosage: 20 MICROGRAM
     Route: 042
     Dates: start: 20230405

REACTIONS (2)
  - Anaphylactic shock [Fatal]
  - Cardio-respiratory arrest [Fatal]

NARRATIVE: CASE EVENT DATE: 20230405
